FAERS Safety Report 19787820 (Version 3)
Quarter: 2021Q4

REPORT INFORMATION
  Report Type: Report from Study
  Country: FR (occurrence: FR)
  Receive Date: 20210903
  Receipt Date: 20211111
  Transmission Date: 20220303
  Serious: Yes (Other)
  Sender: FDA-Public Use
  Company Number: FR-GILEAD-2021-0541791

PATIENT
  Age: 33 Year
  Sex: Female

DRUGS (1)
  1. SACITUZUMAB GOVITECAN [Suspect]
     Active Substance: SACITUZUMAB GOVITECAN
     Indication: Triple negative breast cancer
     Dosage: UNK
     Route: 065
     Dates: start: 202107

REACTIONS (8)
  - Disease progression [Unknown]
  - Drug ineffective [Unknown]
  - Lung disorder [Unknown]
  - Alopecia [Unknown]
  - Abdominal pain [Unknown]
  - Fatigue [Unknown]
  - Nausea [Unknown]
  - Neutropenia [Unknown]

NARRATIVE: CASE EVENT DATE: 20210701
